FAERS Safety Report 4430719-8 (Version None)
Quarter: 2004Q3

REPORT INFORMATION
  Report Type: 
  Country: None (occurrence: None)
  Receive Date: 20040819
  Receipt Date: 20040819
  Transmission Date: 20050211
  Serious: Yes (Hospitalization)
  Sender: FDA-Public Use
  Company Number: None

PATIENT
  Age: 86 Year
  Sex: Male
  Weight: 74.4 kg

DRUGS (8)
  1. MEMANTINE HCL [Suspect]
     Indication: DEMENTIA
     Dosage: 5MG EVERY MORN ORAL
     Route: 048
     Dates: start: 20040130, end: 20040202
  2. PHENYTOIN [Concomitant]
  3. NATEGLINIDE [Concomitant]
  4. FLOUXETINE [Concomitant]
  5. LORAZEPAM [Concomitant]
  6. CLOPIDROGEL [Concomitant]
  7. QUETIAPINE [Concomitant]
  8. DONEPEZIL HCL [Concomitant]

REACTIONS (7)
  - ASTHENIA [None]
  - CEREBRAL HAEMORRHAGE [None]
  - CONVULSION [None]
  - DEPRESSED LEVEL OF CONSCIOUSNESS [None]
  - LETHARGY [None]
  - PARKINSONISM [None]
  - STOMACH DISCOMFORT [None]
